FAERS Safety Report 14971065 (Version 1)
Quarter: 2018Q2

REPORT INFORMATION
  Report Type: Spontaneous
  Country: CA (occurrence: CA)
  Receive Date: 20180604
  Receipt Date: 20180604
  Transmission Date: 20180711
  Serious: Yes (Hospitalization)
  Sender: FDA-Public Use
  Company Number: CA-TEVA-2018-CA-899141

PATIENT
  Sex: Female

DRUGS (2)
  1. AZATHIOPRINE. [Suspect]
     Active Substance: AZATHIOPRINE
     Route: 065
  2. PENICILLIN [Suspect]
     Active Substance: PENICILLIN
     Route: 065

REACTIONS (2)
  - Adverse drug reaction [Unknown]
  - Drug hypersensitivity [Unknown]
